FAERS Safety Report 23389716 (Version 1)
Quarter: 2024Q1

REPORT INFORMATION
  Report Type: Other
  Country: US (occurrence: None)
  Receive Date: 20240111
  Receipt Date: 20240111
  Transmission Date: 20240409
  Serious: Yes (Hospitalization)
  Sender: FDA-Public Use
  Company Number: US-ROCHE-3485833

PATIENT
  Age: 68 Year
  Sex: Female
  Weight: 69.916 kg

DRUGS (3)
  1. OCREVUS [Suspect]
     Active Substance: OCRELIZUMAB
     Indication: Multiple sclerosis
     Dosage: DATE OF TREATMENT: 05/MAR/2021
     Route: 042
  2. BACLOFEN [Concomitant]
     Active Substance: BACLOFEN
     Indication: Muscle spasticity
  3. AVONEX [Concomitant]
     Active Substance: INTERFERON BETA-1A

REACTIONS (7)
  - COVID-19 [Recovered/Resolved]
  - Cerebrovascular accident [Recovered/Resolved with Sequelae]
  - Thrombosis [Recovered/Resolved]
  - Lymphoedema [Not Recovered/Not Resolved]
  - Neuralgia [Unknown]
  - Gait disturbance [Unknown]
  - Atrial septal defect [Unknown]

NARRATIVE: CASE EVENT DATE: 20210501
